FAERS Safety Report 8221341-6 (Version None)
Quarter: 2012Q1

REPORT INFORMATION
  Report Type: 
  Country: None (occurrence: None)
  Receive Date: 20120316
  Receipt Date: 20120301
  Transmission Date: 20120608
  Serious: Yes (Other)
  Sender: FDA-Public Use
  Company Number: JPI-P-020095

PATIENT
  Age: 51 Year
  Sex: Male

DRUGS (4)
  1. CARISOPRODOL [Concomitant]
  2. XYREM [Suspect]
     Indication: CATAPLEXY
     Dosage: 7;9  GM (3.5; 4.5 GM 2 IN 1 D), ORAL
     Route: 048
     Dates: start: 20021108
  3. XYREM [Suspect]
     Indication: CATAPLEXY
     Dosage: 7;9  GM (3.5; 4.5 GM 2 IN 1 D), ORAL
     Route: 048
     Dates: start: 20070427
  4. DEXTROAMPHETAMINE [Concomitant]

REACTIONS (5)
  - SLEEP TALKING [None]
  - ECONOMIC PROBLEM [None]
  - SPINAL FRACTURE [None]
  - FALL [None]
  - SOMNAMBULISM [None]
